FAERS Safety Report 21337114 (Version 2)
Quarter: 2022Q4

REPORT INFORMATION
  Report Type: Report from Study
  Country: US (occurrence: US)
  Receive Date: 20220915
  Receipt Date: 20221116
  Transmission Date: 20230113
  Serious: No
  Sender: FDA-Public Use
  Company Number: US-NOVARTISTESTPH-NVSC2022US208393

PATIENT
  Sex: Male

DRUGS (2)
  1. COSENTYX [Suspect]
     Active Substance: SECUKINUMAB
     Indication: Ankylosing spondylitis
     Dosage: 150 MG, QW, (4 WEEKLY DOSES)
     Route: 065
  2. COSENTYX [Suspect]
     Active Substance: SECUKINUMAB
     Dosage: 150 MG, QMO
     Route: 058

REACTIONS (8)
  - Hypersensitivity [Unknown]
  - Rash erythematous [Not Recovered/Not Resolved]
  - Papule [Unknown]
  - Neck pain [Unknown]
  - Pain [Unknown]
  - Diarrhoea [Unknown]
  - Arthralgia [Unknown]
  - Drug ineffective [Unknown]
